FAERS Safety Report 16642698 (Version 11)
Quarter: 2021Q1

REPORT INFORMATION
  Report Type: Spontaneous
  Country: US (occurrence: US)
  Receive Date: 20190729
  Receipt Date: 20210311
  Transmission Date: 20210419
  Serious: Yes (Other)
  Sender: FDA-Public Use
  Company Number: US-PFIZER INC-2019302744

PATIENT
  Age: 96 Year
  Sex: Male
  Weight: 79.38 kg

DRUGS (11)
  1. TAMSULOSIN [Concomitant]
     Active Substance: TAMSULOSIN
     Dosage: 16 MG, DAILY (TAKE TWO DAILY BY MOUTH)
     Route: 048
  2. TAMSULOSIN [Concomitant]
     Active Substance: TAMSULOSIN
     Indication: PROSTATIC DISORDER
     Dosage: 8 MG, DAILY
     Route: 048
  3. TOVIAZ [Suspect]
     Active Substance: FESOTERODINE FUMARATE
     Indication: PROSTATIC DISORDER
     Dosage: 8 MG, DAILY
     Route: 048
     Dates: start: 2016
  4. RAPAFLO [Concomitant]
     Active Substance: SILODOSIN
     Indication: PROSTATOMEGALY
     Dosage: 8 MG, 1X/DAY
     Route: 048
  5. ALFUZOSIN [Concomitant]
     Active Substance: ALFUZOSIN
     Dosage: UNK
  6. LOSARTAN. [Concomitant]
     Active Substance: LOSARTAN
     Indication: BLOOD PRESSURE ABNORMAL
     Dosage: 1 DF, DAILY, (100?12.5MG; TAKE ONE DAILY BY MOUTH)
     Route: 048
  7. TOVIAZ [Suspect]
     Active Substance: FESOTERODINE FUMARATE
     Indication: POLLAKIURIA
     Dosage: 8 MG, DAILY
     Route: 048
     Dates: start: 2010
  8. AMLODIPINE [Concomitant]
     Active Substance: AMLODIPINE BESYLATE
     Indication: BLOOD PRESSURE ABNORMAL
     Dosage: 10 MG, DAILY (TAKE ONE DAILY BY MOUTH)
     Route: 048
  9. TOVIAZ [Suspect]
     Active Substance: FESOTERODINE FUMARATE
     Indication: PROSTATOMEGALY
     Dosage: 8 MG, 1X/DAY
     Route: 048
  10. FLOMEX [Concomitant]
     Dosage: UNK, 2X/DAY
  11. FLOMEX [Concomitant]
     Dosage: UNK, 1X/DAY

REACTIONS (5)
  - Gout [Unknown]
  - Gait disturbance [Unknown]
  - Blood uric acid increased [Unknown]
  - Prostatomegaly [Not Recovered/Not Resolved]
  - Emotional distress [Not Recovered/Not Resolved]

NARRATIVE: CASE EVENT DATE: 202012
